FAERS Safety Report 10172025 (Version 1)
Quarter: 2014Q2

REPORT INFORMATION
  Report Type: Spontaneous
  Country: IT (occurrence: IT)
  Receive Date: 20140515
  Receipt Date: 20140515
  Transmission Date: 20141212
  Serious: Yes (Life-Threatening)
  Sender: FDA-Public Use
  Company Number: PHHY2014IT056042

PATIENT
  Age: 69 Year
  Sex: Female

DRUGS (1)
  1. METFORMIN [Suspect]
     Dates: start: 20140401, end: 20140406

REACTIONS (1)
  - Metabolic acidosis [Recovering/Resolving]
